FAERS Safety Report 12836246 (Version 1)
Quarter: 2016Q4

REPORT INFORMATION
  Report Type: Spontaneous
  Country: US (occurrence: US)
  Receive Date: 20161011
  Receipt Date: 20161011
  Transmission Date: 20170207
  Serious: No
  Sender: FDA-Public Use
  Company Number: US-GLAXOSMITHKLINE-US2016143816

PATIENT
  Sex: Male

DRUGS (1)
  1. NICODERM CQ [Suspect]
     Active Substance: NICOTINE
     Indication: SMOKING CESSATION THERAPY
     Dosage: 21 MG, UNK
     Dates: start: 20160830

REACTIONS (8)
  - Irritability [Not Recovered/Not Resolved]
  - Nervousness [Unknown]
  - Anger [Not Recovered/Not Resolved]
  - Anxiety [Unknown]
  - Frustration tolerance decreased [Not Recovered/Not Resolved]
  - Blood pressure increased [Unknown]
  - Disturbance in attention [Not Recovered/Not Resolved]
  - Insomnia [Not Recovered/Not Resolved]

NARRATIVE: CASE EVENT DATE: 20160915
